FAERS Safety Report 6023427-3 (Version None)
Quarter: 2008Q4

REPORT INFORMATION
  Report Type: 
  Country: None (occurrence: None)
  Receive Date: 20081230
  Receipt Date: 20081224
  Transmission Date: 20090506
  Serious: Yes (Other)
  Sender: FDA-Public Use
  Company Number: JP-ASTRAZENECA-2008AP09637

PATIENT
  Age: 47 Year
  Sex: Female

DRUGS (2)
  1. XYLOCAINE [Suspect]
     Indication: LOCAL ANAESTHESIA
     Dosage: DOSE UNKNOWN
     Route: 049
     Dates: start: 20081210, end: 20081210
  2. HALCION [Concomitant]
     Indication: INSOMNIA
     Route: 048

REACTIONS (1)
  - ANAPHYLACTIC REACTION [None]
